FAERS Safety Report 7434713-4 (Version None)
Quarter: 2011Q2

REPORT INFORMATION
  Report Type: 
  Country: None (occurrence: None)
  Receive Date: 20110425
  Receipt Date: 20110419
  Transmission Date: 20111010
  Serious: Yes (Hospitalization, Other)
  Sender: FDA-Public Use
  Company Number: CA-PFIZER INC-2010070247

PATIENT
  Age: 65 Year
  Sex: Male
  Weight: 117 kg

DRUGS (16)
  1. REPAGLINIDE [Concomitant]
     Dosage: 2 MG, 3X/DAY
     Route: 048
     Dates: end: 20030615
  2. RAMIPRIL [Concomitant]
     Dosage: 10 MG, 1X/DAY
     Route: 048
     Dates: end: 20030615
  3. MULTI-VITAMINS [Concomitant]
     Dosage: UNK
     Dates: end: 20030615
  4. METOLAZONE [Concomitant]
     Dosage: 2.5 MG, 1X/DAY
     Route: 048
     Dates: end: 20030615
  5. AMIODARONE [Concomitant]
     Dosage: 200 MG, 1X/DAY
     Route: 048
  6. GLUCONORM [Suspect]
     Dosage: 2 MG, 3X/DAY
  7. FUROSEMIDE [Concomitant]
     Dosage: 40 MG, 2X/DAY
     Route: 048
     Dates: end: 20030615
  8. WARFARIN [Concomitant]
     Dosage: UNK, ONCE DAILY
     Route: 048
  9. ROSIGLITAZONE [Concomitant]
     Dosage: 4 MG, 1X/DAY
     Route: 048
     Dates: end: 20030615
  10. CARVEDILOL [Concomitant]
     Dosage: 12.5 MG, 2X/DAY
     Route: 048
  11. VITAMIN E [Concomitant]
     Dosage: UNK
     Dates: end: 20030615
  12. COLCHICINE [Suspect]
     Indication: GOUT
     Dosage: 0.6 MG, 2X/DAY AS NEEDED
     Route: 048
     Dates: start: 20010101, end: 20030615
  13. LIPITOR [Suspect]
     Indication: HYPERCHOLESTEROLAEMIA
     Dosage: 10 MG, 1X/DAY AT BEDTIME
     Route: 048
     Dates: start: 20010811, end: 20030615
  14. COENZYME Q10 [Concomitant]
     Dosage: UNK
     Dates: end: 20030615
  15. IRON [Concomitant]
     Dosage: UNK
     Dates: end: 20030615
  16. SERTRALINE [Concomitant]
     Dosage: 50 MG, 1X/DAY
     Route: 048
     Dates: end: 20030615

REACTIONS (14)
  - BLOOD URIC ACID INCREASED [None]
  - ASPARTATE AMINOTRANSFERASE INCREASED [None]
  - BLOOD CREATININE INCREASED [None]
  - BLOOD CREATINE PHOSPHOKINASE MB INCREASED [None]
  - RED BLOOD CELL SEDIMENTATION RATE INCREASED [None]
  - ALANINE AMINOTRANSFERASE INCREASED [None]
  - BLOOD UREA INCREASED [None]
  - DIARRHOEA [None]
  - LIVER FUNCTION TEST ABNORMAL [None]
  - COUGH [None]
  - DYSPNOEA [None]
  - BLOOD CREATINE PHOSPHOKINASE INCREASED [None]
  - HEPATIC ENZYME INCREASED [None]
  - MUSCULAR WEAKNESS [None]
